FAERS Safety Report 17306209 (Version 1)
Quarter: 2020Q3

REPORT INFORMATION
  Report Type: Spontaneous
  Country: CA (occurrence: CA)
  Receive Date: 20200123
  Receipt Date: 20200123
  Transmission Date: 20201104
  Serious: Yes (Congenital Anomaly, Other)
  Sender: FDA-Public Use
  Company Number: CA-ASTRAZENECA-2018SE60730

PATIENT
  Sex: Female
  Weight: 3.2 kg

DRUGS (17)
  1. DULOXETINE. [Suspect]
     Active Substance: DULOXETINE
     Route: 063
  2. SODIUM DOCUSATE [Suspect]
     Active Substance: DOCUSATE SODIUM
     Route: 063
  3. DULOXETINE. [Suspect]
     Active Substance: DULOXETINE
     Route: 064
  4. METHYLPHENIDATE. [Suspect]
     Active Substance: METHYLPHENIDATE
     Route: 063
  5. LEVOTHYROXINE. [Suspect]
     Active Substance: LEVOTHYROXINE
     Dosage: DOSE TAPERED
     Route: 063
  6. FERROUS SULFATE. [Suspect]
     Active Substance: FERROUS SULFATE
     Route: 064
  7. METHYLPHENIDATE. [Suspect]
     Active Substance: METHYLPHENIDATE
     Route: 064
  8. SODIUM DOCUSATE [Suspect]
     Active Substance: DOCUSATE SODIUM
     Route: 064
  9. LEVOTHYROXINE. [Suspect]
     Active Substance: LEVOTHYROXINE
     Route: 064
  10. CYCLOBENZAPRINE. [Suspect]
     Active Substance: CYCLOBENZAPRINE
     Route: 063
  11. URSODIOL. [Suspect]
     Active Substance: URSODIOL
     Route: 064
  12. DOMPERIDONE [Suspect]
     Active Substance: DOMPERIDONE
     Indication: LACTATION DISORDER
     Dosage: 20 MG TWO TO FOUR TIMES A DAY
     Route: 063
  13. OMEPRAZOLE. [Suspect]
     Active Substance: OMEPRAZOLE
     Route: 063
  14. CYCLOBENZAPRINE. [Suspect]
     Active Substance: CYCLOBENZAPRINE
     Route: 064
  15. INSULIN [Suspect]
     Active Substance: INSULIN NOS
     Route: 064
  16. OMEPRAZOLE. [Suspect]
     Active Substance: OMEPRAZOLE
     Route: 064
  17. FERROUS SULFATE. [Suspect]
     Active Substance: FERROUS SULFATE
     Route: 063

REACTIONS (2)
  - Maternal exposure during breast feeding [Unknown]
  - Respiratory tract malformation [Unknown]
